FAERS Safety Report 8357505-0 (Version None)
Quarter: 2012Q2

REPORT INFORMATION
  Report Type: 
  Country: None (occurrence: None)
  Receive Date: 20120511
  Receipt Date: 20120430
  Transmission Date: 20120825
  Serious: Yes (Life-Threatening, Hospitalization, Other)
  Sender: FDA-Public Use
  Company Number: 2012P1019551

PATIENT
  Age: 36 Year
  Sex: Female

DRUGS (1)
  1. CEFTRIAXONE [Suspect]
     Indication: UPPER RESPIRATORY TRACT INFECTION
     Dosage: IV
     Route: 042

REACTIONS (16)
  - CONTINUOUS HAEMODIAFILTRATION [None]
  - MITRAL VALVE INCOMPETENCE [None]
  - TRICUSPID VALVE INCOMPETENCE [None]
  - ANAPHYLACTIC REACTION [None]
  - GENERAL PHYSICAL HEALTH DETERIORATION [None]
  - CARDIOGENIC SHOCK [None]
  - HAEMODYNAMIC INSTABILITY [None]
  - PULMONARY OEDEMA [None]
  - RENAL IMPAIRMENT [None]
  - ACUTE RESPIRATORY FAILURE [None]
  - METABOLIC ACIDOSIS [None]
  - MULTI-ORGAN FAILURE [None]
  - ANURIA [None]
  - PLEURAL EFFUSION [None]
  - PNEUMONIA [None]
  - STRESS CARDIOMYOPATHY [None]
